FAERS Safety Report 6694059-9 (Version None)
Quarter: 2010Q2

REPORT INFORMATION
  Report Type: 
  Country: None (occurrence: None)
  Receive Date: 20100423
  Receipt Date: 20100412
  Transmission Date: 20101027
  Serious: Yes (Life-Threatening, Other)
  Sender: FDA-Public Use
  Company Number: JP-PFIZER INC-2010046527

PATIENT
  Age: 65 Year
  Sex: Female

DRUGS (3)
  1. METHYLPREDNISOLONE SODIUM SUCCINATE [Suspect]
     Indication: DERMATOMYOSITIS
     Dosage: 500 MG/DAY
     Route: 042
  2. PREDNISOLONE [Suspect]
     Indication: DERMATOMYOSITIS
     Dosage: 60 MG/DAY
     Route: 048
  3. HEPARIN [Suspect]
     Indication: PROPHYLAXIS
     Dosage: 5000 IU PER DAY
     Route: 042

REACTIONS (2)
  - PULMONARY OEDEMA [None]
  - SHOCK HAEMORRHAGIC [None]
